FAERS Safety Report 19304254 (Version 1)
Quarter: 2021Q2

REPORT INFORMATION
  Report Type: Spontaneous
  Country: TW (occurrence: TW)
  Receive Date: 20210525
  Receipt Date: 20210525
  Transmission Date: 20210717
  Serious: Yes (Death, Other)
  Sender: FDA-Public Use
  Company Number: TW-PFIZER INC-2021557070

PATIENT
  Sex: Male

DRUGS (1)
  1. XELJANZ XR [Suspect]
     Active Substance: TOFACITINIB CITRATE
     Indication: PROSTATIC SPECIFIC ANTIGEN
     Dosage: 11 MG, QD
     Route: 048
     Dates: start: 20200907

REACTIONS (1)
  - Acute kidney injury [Fatal]
